FAERS Safety Report 5026066-6 (Version None)
Quarter: 2006Q2

REPORT INFORMATION
  Report Type: 
  Country: None (occurrence: None)
  Receive Date: 20060612
  Receipt Date: 20060612
  Transmission Date: 20061013
  Serious: Yes (Hospitalization)
  Sender: FDA-Public Use
  Company Number: None

PATIENT
  Age: 31 Year
  Sex: Female
  Weight: 89.2 kg

DRUGS (2)
  1. KETOROLAC TROMETHAMINE [Suspect]
     Indication: PROCEDURAL PAIN
     Dosage: 30 MG ONCE IM
     Route: 030
     Dates: start: 20060607, end: 20060607
  2. NEOSTIGMINE [Suspect]
     Indication: NEUROMUSCULAR BLOCKADE REVERSAL
     Dosage: ONCE IV BOLUS
     Route: 040
     Dates: start: 20060607, end: 20060607

REACTIONS (4)
  - HYPOTENSION [None]
  - POST PROCEDURAL COMPLICATION [None]
  - SPUTUM ABNORMAL [None]
  - SPUTUM DISCOLOURED [None]
